FAERS Safety Report 21033129 (Version 2)
Quarter: 2022Q3

REPORT INFORMATION
  Report Type: Spontaneous
  Country: DE (occurrence: DE)
  Receive Date: 20220701
  Receipt Date: 20220706
  Transmission Date: 20221026
  Serious: Yes (Other)
  Sender: FDA-Public Use
  Company Number: DE-MYLANLABS-2022M1049411

PATIENT
  Age: 42 Year
  Sex: Male

DRUGS (14)
  1. CLOZAPINE [Interacting]
     Active Substance: CLOZAPINE
     Indication: Schizophrenia
     Dosage: 12.5 MILLIGRAM
     Route: 065
     Dates: start: 20210518
  2. CLOZAPINE [Interacting]
     Active Substance: CLOZAPINE
     Dosage: 100 MILLIGRAM
     Route: 065
     Dates: start: 20210525
  3. CLOZAPINE [Interacting]
     Active Substance: CLOZAPINE
     Dosage: 175 MILLIGRAM
     Route: 065
     Dates: start: 20210530, end: 20210531
  4. CLOZAPINE [Interacting]
     Active Substance: CLOZAPINE
     Dosage: 50 MILLIGRAM
     Route: 065
     Dates: start: 20210601
  5. CLOZAPINE [Interacting]
     Active Substance: CLOZAPINE
     Dosage: 150 MILLIGRAM
     Route: 065
     Dates: start: 20210604
  6. CLOZAPINE [Interacting]
     Active Substance: CLOZAPINE
     Dosage: 200 MILLIGRAM
     Route: 065
     Dates: start: 20210606
  7. CLOZAPINE [Interacting]
     Active Substance: CLOZAPINE
     Dosage: 112.5 MILLIGRAM
     Route: 065
     Dates: start: 20210629
  8. LORAZEPAM [Suspect]
     Active Substance: LORAZEPAM
     Indication: Schizophrenia
     Dosage: 2 MILLIGRAM
     Route: 065
     Dates: start: 202104, end: 2021
  9. LORAZEPAM [Suspect]
     Active Substance: LORAZEPAM
     Dosage: 1 MILLIGRAM (THERAPY CONTINUED ON LOW DOSE)
     Route: 065
     Dates: start: 2021
  10. SPIKEVAX [Interacting]
     Active Substance: ELASOMERAN
     Indication: COVID-19 immunisation
     Dosage: FIRST DOSE OF VACCINE
     Route: 065
     Dates: start: 20210413
  11. SPIKEVAX [Interacting]
     Active Substance: ELASOMERAN
     Dosage: SECOND DOSE OF VACCINE
     Route: 065
     Dates: start: 20210525
  12. HALOPERIDOL [Suspect]
     Active Substance: HALOPERIDOL
     Indication: Schizophrenia
     Dosage: 8 MILLIGRAM
     Route: 065
     Dates: start: 202104
  13. HALOPERIDOL [Suspect]
     Active Substance: HALOPERIDOL
     Dosage: 8 MILLIGRAM
     Route: 065
     Dates: start: 202104
  14. PROTHIPENDYL [Suspect]
     Active Substance: PROTHIPENDYL
     Indication: Schizophrenia
     Dosage: 80 MILLIGRAM
     Route: 065
     Dates: start: 2021, end: 2021

REACTIONS (14)
  - Drug interaction [Recovering/Resolving]
  - Antipsychotic drug level increased [Recovering/Resolving]
  - Schizophrenia [Recovered/Resolved]
  - Condition aggravated [Recovered/Resolved]
  - Tachycardia [Recovered/Resolved]
  - Hypotension [Unknown]
  - Therapy non-responder [Unknown]
  - Delirium [Recovered/Resolved]
  - Hypersensitivity [Not Recovered/Not Resolved]
  - Disorientation [Recovered/Resolved]
  - Dizziness [Recovered/Resolved]
  - Somnolence [Recovered/Resolved]
  - Agitation [Recovered/Resolved]
  - Gait disturbance [Recovered/Resolved]

NARRATIVE: CASE EVENT DATE: 20210101
